FAERS Safety Report 9056294 (Version 1)
Quarter: 2013Q1

REPORT INFORMATION
  Report Type: Spontaneous
  Country: FR (occurrence: FR)
  Receive Date: 20130205
  Receipt Date: 20130205
  Transmission Date: 20140127
  Serious: Yes (Hospitalization)
  Sender: FDA-Public Use
  Company Number: FR-ASTRAZENECA-2013SE06679

PATIENT
  Age: 19390 Day
  Sex: Male

DRUGS (11)
  1. CRESTOR [Suspect]
     Route: 048
  2. ONGLYZA [Suspect]
     Indication: TYPE 2 DIABETES MELLITUS
     Route: 048
     Dates: start: 20110604, end: 20121008
  3. AXELER [Concomitant]
     Indication: HYPERTENSION
     Route: 048
  4. MEDIATENSYL [Concomitant]
     Indication: HYPERTENSION
     Route: 048
  5. INEXIUM [Concomitant]
     Indication: GASTROOESOPHAGEAL REFLUX DISEASE
     Route: 048
  6. LASILIX [Concomitant]
     Indication: HYPERTENSION
     Route: 048
  7. STAGID [Concomitant]
     Indication: TYPE 2 DIABETES MELLITUS
     Route: 048
     Dates: end: 20121008
  8. ALDACTONE [Concomitant]
     Indication: HYPERCHOLESTEROLAEMIA
     Route: 048
     Dates: end: 20121008
  9. LANTUS [Concomitant]
     Indication: TYPE 2 DIABETES MELLITUS
     Route: 058
     Dates: start: 2008
  10. NOVORAPID [Concomitant]
     Indication: TYPE 2 DIABETES MELLITUS
     Route: 058
  11. BIPERIDYS [Concomitant]

REACTIONS (1)
  - Nephrotic syndrome [Unknown]
